FAERS Safety Report 10904403 (Version 1)
Quarter: 2015Q1

REPORT INFORMATION
  Report Type: Spontaneous
  Country: GB (occurrence: None)
  Receive Date: 20150306
  Receipt Date: 20150306
  Transmission Date: 20150721
  Serious: Yes (Disabling)
  Sender: FDA-Public Use
  Company Number: COL_19203_2015

PATIENT
  Age: 62 Year
  Sex: Female

DRUGS (1)
  1. COLGATE OPTIC WHITE - SPARKLING MINT [Suspect]
     Active Substance: SODIUM MONOFLUOROPHOSPHATE
     Indication: PRODUCT USED FOR UNKNOWN INDICATION
     Dosage: NORMAL AMOUNT/ 2-3 TIMES PER DAY/ ORAL
     Route: 048
     Dates: start: 20150205, end: 20150217

REACTIONS (2)
  - Oropharyngeal blistering [None]
  - Oral mucosal blistering [None]

NARRATIVE: CASE EVENT DATE: 20150207
